FAERS Safety Report 7757842-4 (Version None)
Quarter: 2011Q3

REPORT INFORMATION
  Report Type: 
  Country: None (occurrence: None)
  Receive Date: 20110918
  Receipt Date: 20110718
  Transmission Date: 20111222
  Serious: Yes (Death, Hospitalization, Other)
  Sender: FDA-Public Use
  Company Number: PHHY2011DE41737

PATIENT
  Sex: Male

DRUGS (17)
  1. ISON [Concomitant]
     Indication: CORONARY ARTERY DISEASE
     Dosage: 120 MG, QD
     Route: 048
     Dates: start: 19950301
  2. MIRTAZAPINE [Concomitant]
     Indication: SLEEP DISORDER
  3. FUROSEMIDE [Concomitant]
     Indication: CARDIAC FAILURE
     Dosage: 250 MG, QD
     Route: 048
     Dates: start: 20081024
  4. MIRTAZAPINE [Concomitant]
     Indication: DEPRESSION
     Dosage: 15 MG, QD
     Route: 048
     Dates: start: 20100329
  5. DIOVAN [Suspect]
     Indication: HYPERTENSION
     Dosage: 160 MG, QD
     Route: 048
     Dates: start: 20100602
  6. DIOVAN [Suspect]
     Indication: CARDIAC FAILURE
  7. ORAL ANTIDIABETICS [Concomitant]
     Indication: DIABETES MELLITUS
     Dosage: UNK UKN, UNK
  8. SPIRIVA [Concomitant]
     Indication: CHRONIC OBSTRUCTIVE PULMONARY DISEASE
     Dosage: 18 UG, QD
     Dates: start: 20090720
  9. ALLOPURINOL [Concomitant]
     Indication: HYPERURICAEMIA
     Dosage: 100 MG, QD
     Route: 048
     Dates: start: 20101206
  10. RASILEZ [Suspect]
     Dosage: 150 MG, QD
     Route: 048
     Dates: start: 20090409, end: 20100602
  11. SYMBICORT [Concomitant]
     Indication: CHRONIC OBSTRUCTIVE PULMONARY DISEASE
     Dosage: UNK UKN, UNK
     Dates: start: 20100210
  12. AZUPROSTAT [Concomitant]
     Indication: BENIGN PROSTATIC HYPERPLASIA
     Dosage: 460 MG, QD
     Route: 048
     Dates: start: 20101021
  13. CALCIUM ANTAGONIST [Concomitant]
     Dosage: UNK UKN, UNK
  14. NSAID'S [Concomitant]
     Dosage: UNK UKN, UNK
  15. METFORMIN [Concomitant]
     Indication: DIABETES MELLITUS
     Dosage: 1700 MG, QD
     Route: 048
     Dates: start: 20060906
  16. FUROSEMIDE [Concomitant]
     Indication: RENAL FAILURE
  17. DIURETICS [Concomitant]
     Dosage: UNK UKN, UNK

REACTIONS (5)
  - VENTRICULAR FIBRILLATION [None]
  - ACUTE MYOCARDIAL INFARCTION [None]
  - BLOOD PRESSURE DECREASED [None]
  - CARDIOGENIC SHOCK [None]
  - LUNG INFECTION [None]
